FAERS Safety Report 12920906 (Version 1)
Quarter: 2016Q4

REPORT INFORMATION
  Report Type: Spontaneous
  Country: IT (occurrence: IT)
  Receive Date: 20161107
  Receipt Date: 20161107
  Transmission Date: 20170207
  Serious: Yes (Hospitalization)
  Sender: FDA-Public Use
  Company Number: IT-JNJFOC-20161100534

PATIENT
  Age: 78 Year
  Sex: Male

DRUGS (4)
  1. TICLOPIDINE [Concomitant]
     Active Substance: TICLOPIDINE
     Route: 065
  2. FLECAINIDE [Concomitant]
     Active Substance: FLECAINIDE
     Route: 065
  3. SOTALOL. [Concomitant]
     Active Substance: SOTALOL
     Route: 065
  4. XARELTO [Suspect]
     Active Substance: RIVAROXABAN
     Indication: ATRIAL FIBRILLATION
     Route: 048

REACTIONS (3)
  - Haematuria [Recovering/Resolving]
  - Back pain [Recovering/Resolving]
  - Strangury [Recovering/Resolving]

NARRATIVE: CASE EVENT DATE: 20160427
